FAERS Safety Report 18567805 (Version 1)
Quarter: 2020Q4

REPORT INFORMATION
  Report Type: Other
  Country: IT (occurrence: IT)
  Receive Date: 20201202
  Receipt Date: 20201202
  Transmission Date: 20210114
  Serious: Yes (Other)
  Sender: FDA-Public Use
  Company Number: IT-ROCHE-2724444

PATIENT
  Age: 77 Year
  Sex: Female

DRUGS (4)
  1. IBANDRONIC ACID. [Suspect]
     Active Substance: IBANDRONIC ACID
     Indication: OSTEOPOROSIS
     Route: 065
     Dates: start: 2010, end: 2015
  2. DENOSUMAB [Suspect]
     Active Substance: DENOSUMAB
     Indication: OSTEOPOROSIS
     Route: 065
     Dates: end: 2019
  3. CORTISONE [Concomitant]
     Active Substance: CORTISONE
     Indication: POLYMYALGIA RHEUMATICA
     Dates: start: 2016
  4. ALENDRONIC ACID [Suspect]
     Active Substance: ALENDRONIC ACID
     Indication: OSTEOPOROSIS
     Route: 065
     Dates: end: 2010

REACTIONS (3)
  - Osteonecrosis of jaw [Recovered/Resolved]
  - Pain [Recovered/Resolved]
  - Fistula [Recovered/Resolved]
